FAERS Safety Report 13243507 (Version 1)
Quarter: 2017Q1

REPORT INFORMATION
  Report Type: Spontaneous
  Country: US (occurrence: US)
  Receive Date: 20170216
  Receipt Date: 20170216
  Transmission Date: 20170428
  Serious: No
  Sender: FDA-Public Use
  Company Number: US-ALLERGAN-1703312US

PATIENT
  Sex: Female

DRUGS (1)
  1. KYBELLA [Suspect]
     Active Substance: DEOXYCHOLIC ACID
     Indication: SKIN WRINKLING
     Dosage: 4 UNK, SINGLE
     Route: 058
     Dates: start: 20170113, end: 20170113

REACTIONS (2)
  - Facial paresis [Not Recovered/Not Resolved]
  - Wrong technique in product usage process [Unknown]
